FAERS Safety Report 23429935 (Version 1)
Quarter: 2024Q1

REPORT INFORMATION
  Report Type: Other
  Country: JP (occurrence: None)
  Receive Date: 20240122
  Receipt Date: 20240122
  Transmission Date: 20240410
  Serious: Yes (Hospitalization, Other)
  Sender: FDA-Public Use
  Company Number: JP-Square-000195

PATIENT
  Age: 66 Year
  Sex: Female

DRUGS (3)
  1. ACYCLOVIR [Suspect]
     Active Substance: ACYCLOVIR
     Indication: Encephalitis
  2. NIRMATRELVIR\RITONAVIR [Concomitant]
     Active Substance: NIRMATRELVIR\RITONAVIR
     Indication: COVID-19
  3. VIDARABINE [Concomitant]
     Active Substance: VIDARABINE
     Indication: Encephalitis

REACTIONS (3)
  - CSF cell count increased [Recovered/Resolved]
  - Drug ineffective [Recovered/Resolved]
  - Drug resistance [Recovered/Resolved]
